FAERS Safety Report 9301703 (Version 1)
Quarter: 2012Q4

REPORT INFORMATION
  Report Type: Spontaneous
  Country: US (occurrence: None)
  Receive Date: 20121109
  Receipt Date: 20121109
  Transmission Date: 20130627
  Serious: Yes (Life-Threatening, Other)
  Sender: FDA-Public Use
  Company Number: 2012S1000063

PATIENT
  Age: 56 Year
  Sex: Male
  Weight: 78.2 kg

DRUGS (9)
  1. CUBICIN [Suspect]
     Indication: SKIN INFECTION
     Route: 042
  2. METOPROLOL [Concomitant]
  3. HUMALOG [Concomitant]
  4. LANTUS [Concomitant]
  5. FENOFIBRATE [Concomitant]
  6. CEFTIN [Concomitant]
  7. PREDNISONE [Concomitant]
  8. MULTIVIT [Concomitant]
  9. VITAMIN D NOS [Concomitant]

REACTIONS (5)
  - Grand mal convulsion [None]
  - Hypoxia [None]
  - Pulse pressure decreased [None]
  - Dyspnoea [None]
  - Blood glucose increased [None]
